FAERS Safety Report 16771203 (Version 2)
Quarter: 2019Q4

REPORT INFORMATION
  Report Type: Spontaneous
  Country: US (occurrence: SV)
  Receive Date: 20190904
  Receipt Date: 20191025
  Transmission Date: 20200122
  Serious: Yes (Disabling, Other)
  Sender: FDA-Public Use
  Company Number: US-AMGEN-USASP2019140604

PATIENT
  Age: 13 Year
  Sex: Male
  Weight: 31 kg

DRUGS (2)
  1. NEUPOGEN [Suspect]
     Active Substance: FILGRASTIM
     Dosage: 30 MICROGRAM
     Route: 065
  2. NEUPOGEN [Suspect]
     Active Substance: FILGRASTIM
     Indication: INFANTILE GENETIC AGRANULOCYTOSIS
     Dosage: 1 MICROGRAM/KILOGRAM, QD
     Route: 065
     Dates: start: 201403

REACTIONS (8)
  - Bone pain [Unknown]
  - Sinusitis [Unknown]
  - Vitritis [Unknown]
  - Immunodeficiency congenital [Unknown]
  - Eye infection toxoplasmal [Unknown]
  - Off label use [Unknown]
  - Blindness unilateral [Unknown]
  - Dengue fever [Unknown]
